FAERS Safety Report 5675058-2 (Version None)
Quarter: 2008Q2

REPORT INFORMATION
  Report Type: 
  Country: None (occurrence: None)
  Receive Date: 20080303
  Receipt Date: 20071109
  Transmission Date: 20081010
  Serious: Yes (Death, Life-Threatening, Hospitalization)
  Sender: FDA-Public Use
  Company Number: RB-8519-2007

PATIENT
  Age: 49 Year
  Sex: Male

DRUGS (3)
  1. NALTREXONE HYDROCHLORIDE [Suspect]
     Indication: DRUG DEPENDENCE
     Dosage: 25 MG QD
     Dates: start: 20071010, end: 20071010
  2. SUBUTEX [Suspect]
     Indication: DRUG DEPENDENCE
     Dosage: 4 MG BID PATIENT GIVEN 4 MG THEN 2 HOURS LATER ANOTHER 4 MG. SUBLINGUAL
     Route: 060
     Dates: start: 20071010, end: 20071010
  3. BENZODIAZEPINE DERIVATIVES [Suspect]
     Indication: DRUG USE FOR UNKNOWN INDICATION
     Dates: end: 20071010

REACTIONS (3)
  - DRUG TOXICITY [None]
  - HYPOXIC ENCEPHALOPATHY [None]
  - RESPIRATORY ARREST [None]
